FAERS Safety Report 4292011-4 (Version None)
Quarter: 2004Q1

REPORT INFORMATION
  Report Type: 
  Country: None (occurrence: None)
  Receive Date: 20040126
  Receipt Date: 20030922
  Transmission Date: 20041129
  Serious: No
  Sender: FDA-Public Use
  Company Number: USA030947925

PATIENT
  Age: 62 Year
  Sex: Female
  Weight: 45 kg

DRUGS (2)
  1. FORTEO [Suspect]
     Indication: OSTEOPOROSIS
     Dosage: 20 UG/DAY
     Dates: start: 20030905
  2. HYDROCHLOROTHIAZIDE [Concomitant]

REACTIONS (3)
  - INSOMNIA [None]
  - NIGHTMARE [None]
  - TENSION [None]
